FAERS Safety Report 18547156 (Version 1)
Quarter: 2020Q4

REPORT INFORMATION
  Report Type: Report from Study
  Country: None (occurrence: US)
  Receive Date: 20201126
  Receipt Date: 20201126
  Transmission Date: 20210114
  Serious: Yes (Disabling, Other)
  Sender: FDA-Public Use
  Company Number: US-ABBVIE-20K-163-3555146-00

PATIENT
  Sex: Male

DRUGS (2)
  1. HUMIRA [Suspect]
     Active Substance: ADALIMUMAB
     Indication: CROHN^S DISEASE
     Dosage: CITRATE FREE
     Route: 058
  2. HUMIRA [Suspect]
     Active Substance: ADALIMUMAB
     Dosage: CITRATE FREE
     Route: 058

REACTIONS (16)
  - Asthenia [Not Recovered/Not Resolved]
  - Increased tendency to bruise [Unknown]
  - Bronchitis [Unknown]
  - Loss of consciousness [Unknown]
  - Diabetes mellitus [Not Recovered/Not Resolved]
  - Nerve injury [Unknown]
  - Musculoskeletal disorder [Not Recovered/Not Resolved]
  - Sleep disorder [Unknown]
  - Disability [Not Recovered/Not Resolved]
  - Fall [Unknown]
  - Headache [Unknown]
  - Neck surgery [Not Recovered/Not Resolved]
  - Haemorrhage [Not Recovered/Not Resolved]
  - Malaise [Unknown]
  - Sneezing [Unknown]
  - Pain [Unknown]
